FAERS Safety Report 9034012 (Version 1)
Quarter: 2013Q1

REPORT INFORMATION
  Report Type: Spontaneous
  Country: CA (occurrence: CA)
  Receive Date: 20130128
  Receipt Date: 20130128
  Transmission Date: 20140127
  Serious: Yes (Hospitalization, Other)
  Sender: FDA-Public Use
  Company Number: CA-AMGEN-CANSP2012029788

PATIENT
  Age: 73 Year
  Sex: Female
  Weight: 57.14 kg

DRUGS (1)
  1. PROLIA [Suspect]
     Indication: OSTEOPOROSIS
     Dosage: 60 MG, Q6MO
     Route: 058
     Dates: start: 20111206

REACTIONS (3)
  - Infection [Recovered/Resolved]
  - Gingival abscess [Recovered/Resolved]
  - Cellulitis [Recovered/Resolved]
